FAERS Safety Report 7356760-3 (Version None)
Quarter: 2011Q1

REPORT INFORMATION
  Report Type: 
  Country: None (occurrence: None)
  Receive Date: 20110316
  Receipt Date: 20110307
  Transmission Date: 20110831
  Serious: Yes (Hospitalization, Other)
  Sender: FDA-Public Use
  Company Number: US-AMGEN-USASP2011012742

PATIENT
  Age: 54 Year
  Sex: Male

DRUGS (2)
  1. ENBREL [Suspect]
     Indication: PSORIATIC ARTHROPATHY
     Dosage: 50 MG, 2 TIMES/WK
     Dates: start: 20070206
  2. ENBREL [Suspect]
     Indication: PSORIASIS

REACTIONS (6)
  - LOSS OF CONSCIOUSNESS [None]
  - TRANSPLANT REJECTION [None]
  - PSORIATIC ARTHROPATHY [None]
  - INTERVERTEBRAL DISC PROTRUSION [None]
  - FALL [None]
  - PSORIASIS [None]
